FAERS Safety Report 7993599-X (Version None)
Quarter: 2011Q4

REPORT INFORMATION
  Report Type: 
  Country: None (occurrence: None)
  Receive Date: 20111219
  Receipt Date: 20111215
  Transmission Date: 20120403
  Serious: Yes (Hospitalization, Other)
  Sender: FDA-Public Use
  Company Number: US-MERCK-1108USA01698

PATIENT
  Age: 55 Year
  Sex: Female
  Weight: 79 kg

DRUGS (3)
  1. COPAXONE [Concomitant]
     Route: 065
     Dates: start: 20000101
  2. FOSAMAX [Suspect]
     Route: 048
     Dates: start: 20040101, end: 20100401
  3. FOSAMAX [Suspect]
     Indication: OSTEOPENIA
     Route: 048
     Dates: start: 20010501

REACTIONS (37)
  - ARTHRALGIA [None]
  - REBOUND EFFECT [None]
  - OSTEOPOROSIS [None]
  - COMPRESSION FRACTURE [None]
  - HEADACHE [None]
  - TRIGEMINAL NEURALGIA [None]
  - HERPES ZOSTER [None]
  - MITRAL VALVE STENOSIS [None]
  - SPINAL OSTEOARTHRITIS [None]
  - FOOD POISONING [None]
  - NERVOUSNESS [None]
  - HYPERTENSION [None]
  - WRIST FRACTURE [None]
  - BREAST CANCER [None]
  - IMPAIRED HEALING [None]
  - ANKLE FRACTURE [None]
  - HYPERLIPIDAEMIA [None]
  - HYPERCALCAEMIA [None]
  - INTERVERTEBRAL DISC DEGENERATION [None]
  - LOW TURNOVER OSTEOPATHY [None]
  - FALL [None]
  - DRUG HYPERSENSITIVITY [None]
  - BACK PAIN [None]
  - FEMUR FRACTURE [None]
  - DRY MOUTH [None]
  - GASTROOESOPHAGEAL REFLUX DISEASE [None]
  - RESTLESS LEGS SYNDROME [None]
  - NERVOUS SYSTEM DISORDER [None]
  - CYST [None]
  - BENIGN NEOPLASM OF ADRENAL GLAND [None]
  - CERVICAL SPINAL STENOSIS [None]
  - INTERVERTEBRAL DISC PROTRUSION [None]
  - DYSPEPSIA [None]
  - BLADDER DISORDER [None]
  - WEIGHT DECREASED [None]
  - INSOMNIA [None]
  - CATARACT [None]
